FAERS Safety Report 16349569 (Version 1)
Quarter: 2019Q2

REPORT INFORMATION
  Report Type: Spontaneous
  Country: GB (occurrence: GB)
  Receive Date: 20190523
  Receipt Date: 20190523
  Transmission Date: 20190711
  Serious: Yes (Life-Threatening, Hospitalization, Disabling, Other)
  Sender: FDA-Public Use
  Company Number: GB-ELI_LILLY_AND_COMPANY-GB201905010237

PATIENT
  Age: 45 Year
  Sex: Female
  Weight: 82.55 kg

DRUGS (7)
  1. DULOXETINE HYDROCHLORIDE. [Suspect]
     Active Substance: DULOXETINE HYDROCHLORIDE
     Indication: SUICIDAL IDEATION
     Route: 048
     Dates: start: 20181101
  2. DIAZEPAM. [Suspect]
     Active Substance: DIAZEPAM
     Indication: DEPRESSION SUICIDAL
     Route: 048
     Dates: start: 20150307
  3. OLANZAPINE. [Suspect]
     Active Substance: OLANZAPINE
     Indication: DEPRESSION SUICIDAL
     Dosage: 15 MG, DAILY
     Route: 048
     Dates: start: 20150307
  4. VITAMIN B COMPOUND STRONG [Suspect]
     Active Substance: NIACINAMIDE\PYRIDOXINE HYDROCHLORIDE\RIBOFLAVIN\THIAMINE HYDROCHLORIDE
     Indication: PRODUCT USED FOR UNKNOWN INDICATION
     Route: 048
     Dates: start: 20190402
  5. RAMIPRIL. [Suspect]
     Active Substance: RAMIPRIL
     Indication: HYPERTENSION
     Dosage: MORNING AS DIRECTED BY HOSPITAL.
     Route: 048
     Dates: start: 20150307
  6. ACAMPROSATE [Suspect]
     Active Substance: ACAMPROSATE
     Indication: APHASIA
     Route: 048
     Dates: start: 20190402
  7. THIAMINE. [Suspect]
     Active Substance: THIAMINE
     Indication: SUICIDE ATTEMPT
     Route: 048
     Dates: start: 20190401

REACTIONS (2)
  - Suicidal ideation [Not Recovered/Not Resolved]
  - Neglect of personal appearance [Not Recovered/Not Resolved]
